FAERS Safety Report 6391899-0 (Version None)
Quarter: 2009Q4

REPORT INFORMATION
  Report Type: 
  Country: None (occurrence: None)
  Receive Date: 20091007
  Receipt Date: 20090904
  Transmission Date: 20100525
  Serious: No
  Sender: FDA-Public Use
  Company Number: PR-BAYER-200932444NA

PATIENT
  Age: 60 Year
  Sex: Female
  Weight: 27 kg

DRUGS (1)
  1. ULTRAVIST 150 [Suspect]
     Indication: SCAN BRAIN
     Dosage: TOTAL DAILY DOSE: 100 ML  UNIT DOSE: 100 ML
     Route: 042
     Dates: start: 20090902, end: 20090902

REACTIONS (1)
  - URTICARIA [None]
